FAERS Safety Report 5519503-1 (Version None)
Quarter: 2007Q4

REPORT INFORMATION
  Report Type: 
  Country: None (occurrence: None)
  Receive Date: 20071116
  Receipt Date: 20071106
  Transmission Date: 20080405
  Serious: Yes (Hospitalization, Other)
  Sender: FDA-Public Use
  Company Number: US-ELI_LILLY_AND_COMPANY-US200711001413

PATIENT
  Sex: Male
  Weight: 90.249 kg

DRUGS (10)
  1. BYETTA [Suspect]
     Dosage: 5 UG, 2/D
     Route: 058
     Dates: start: 20070301
  2. BYETTA [Suspect]
     Dosage: 10 UG, 2/D
     Route: 058
     Dates: start: 20070401
  3. GLUCOTROL [Concomitant]
     Dosage: 10 MG, 2/D
     Route: 048
  4. METFORMIN HCL [Concomitant]
     Dosage: 800 MG, 2/D
  5. NORVASC [Concomitant]
     Indication: HYPERTENSION
     Dosage: 5 MG, 2/D
     Route: 048
  6. AVAPRO [Concomitant]
     Indication: HYPERTENSION
     Dosage: 300 MG, DAILY (1/D)
     Route: 048
  7. CRESTOR [Concomitant]
     Indication: BLOOD CHOLESTEROL
     Dosage: 40 MG, DAILY (1/D)
     Route: 048
  8. TOPROL-XL [Concomitant]
     Indication: HYPERTENSION
     Dosage: 25 MG, DAILY (1/D)
     Route: 048
  9. ASPIRIN [Concomitant]
     Dosage: 325 MG, DAILY (1/D)
     Route: 048
  10. LISINOPRIL HYDROCHLORTHIAZID [Concomitant]
     Indication: HYPERTENSION
     Dosage: 1 D/F, DAILY (1/D)
     Route: 048

REACTIONS (9)
  - BLOOD GLUCOSE DECREASED [None]
  - BLOOD GLUCOSE INCREASED [None]
  - DIALYSIS [None]
  - JOINT SWELLING [None]
  - LIGAMENT RUPTURE [None]
  - NAUSEA [None]
  - OSTEOMYELITIS [None]
  - RENAL IMPAIRMENT [None]
  - STUPOR [None]
